FAERS Safety Report 17979766 (Version 3)
Quarter: 2022Q1

REPORT INFORMATION
  Report Type: Spontaneous
  Country: US (occurrence: US)
  Receive Date: 20200703
  Receipt Date: 20220106
  Transmission Date: 20220423
  Serious: No
  Sender: FDA-Public Use
  Company Number: US-BAUSCH-BL-2020-017413

PATIENT
  Sex: Female

DRUGS (1)
  1. LACRISERT [Suspect]
     Active Substance: HYDROXYPROPYL CELLULOSE
     Indication: Sjogren^s syndrome
     Route: 047
     Dates: start: 1990, end: 202001

REACTIONS (6)
  - Visual impairment [Not Recovered/Not Resolved]
  - Eye infection [Not Recovered/Not Resolved]
  - Feeling abnormal [Unknown]
  - Corneal abrasion [Not Recovered/Not Resolved]
  - Therapy interrupted [Unknown]
  - Product availability issue [Unknown]

NARRATIVE: CASE EVENT DATE: 20200101
